FAERS Safety Report 6139845-9 (Version None)
Quarter: 2009Q1

REPORT INFORMATION
  Report Type: 
  Country: None (occurrence: None)
  Receive Date: 20090331
  Receipt Date: 20090331
  Transmission Date: 20090719
  Serious: Yes (Other)
  Sender: FDA-Public Use
  Company Number: None

PATIENT
  Sex: Female
  Weight: 74.55 kg

DRUGS (5)
  1. AZITHROMYCIN [Suspect]
     Dosage: 250MG TABLET 250 MG QD ORAL
     Route: 048
     Dates: start: 20081204, end: 20090328
  2. MINOXIDIL [Concomitant]
  3. PRILOSEC [Concomitant]
  4. ROBITUSSIN AC (GUIFENESIN AC) [Concomitant]
  5. SENNA TABLETS [Concomitant]

REACTIONS (1)
  - RASH [None]
